FAERS Safety Report 11838956 (Version 2)
Quarter: 2015Q4

REPORT INFORMATION
  Report Type: Spontaneous
  Country: US (occurrence: US)
  Receive Date: 20151216
  Receipt Date: 20151229
  Transmission Date: 20160305
  Serious: Yes (Hospitalization, Other)
  Sender: FDA-Public Use
  Company Number: US-AMGEN-USASP2015132612

PATIENT
  Age: 0 Day
  Sex: Female

DRUGS (2)
  1. ENBREL [Suspect]
     Active Substance: ETANERCEPT
     Indication: EXPOSURE DURING PREGNANCY
     Dosage: 50 MG, QWK
     Route: 064
     Dates: start: 201402, end: 201412
  2. DHA [Concomitant]
     Active Substance: DIETARY SUPPLEMENT
     Dosage: 500 MG, QD
     Route: 064
     Dates: start: 201412

REACTIONS (4)
  - Foetal growth restriction [Unknown]
  - Feeding disorder of infancy or early childhood [Unknown]
  - Small for dates baby [Unknown]
  - Umbilical cord short [Unknown]

NARRATIVE: CASE EVENT DATE: 20150713
